FAERS Safety Report 21186784 (Version 1)
Quarter: 2022Q3

REPORT INFORMATION
  Report Type: Spontaneous
  Country: JP (occurrence: JP)
  Receive Date: 20220808
  Receipt Date: 20220808
  Transmission Date: 20221027
  Serious: Yes (Other)
  Sender: FDA-Public Use
  Company Number: JP-GLAXOSMITHKLINE-JP2022JPN113953

PATIENT

DRUGS (3)
  1. FLOLAN [Suspect]
     Active Substance: EPOPROSTENOL SODIUM
     Indication: Pulmonary arterial hypertension
     Dosage: 92 NG/KG, CO
  2. RIOCIGUAT [Concomitant]
     Active Substance: RIOCIGUAT
     Indication: Pulmonary arterial hypertension
     Dosage: UNK
  3. MACITENTAN [Concomitant]
     Active Substance: MACITENTAN
     Indication: Pulmonary arterial hypertension
     Dosage: UNK

REACTIONS (9)
  - Colitis ulcerative [Unknown]
  - Immunoglobulin G4 related disease [Unknown]
  - Pulmonary hypertension [Not Recovered/Not Resolved]
  - Arteritis coronary [Unknown]
  - Aortitis [Unknown]
  - Aortic wall hypertrophy [Unknown]
  - Lacrimal gland enlargement [Unknown]
  - Soft tissue swelling [Recovered/Resolved]
  - Coronary artery dilatation [Not Recovered/Not Resolved]
